FAERS Safety Report 4931531-3 (Version None)
Quarter: 2006Q1

REPORT INFORMATION
  Report Type: 
  Country: None (occurrence: None)
  Receive Date: 20060303
  Receipt Date: 20060215
  Transmission Date: 20060701
  Serious: Yes (Life-Threatening)
  Sender: FDA-Public Use
  Company Number: DE-ABBOTT-06P-062-0325197-00

PATIENT
  Sex: Female
  Weight: 57.7 kg

DRUGS (17)
  1. KLACID [Suspect]
     Indication: HELICOBACTER INFECTION
     Route: 042
     Dates: start: 20051214, end: 20051214
  2. KLACID [Suspect]
     Indication: PYREXIA
     Route: 048
     Dates: end: 20051213
  3. KLACID [Suspect]
     Indication: CEREBROVASCULAR ACCIDENT PROPHYLAXIS
  4. KLACID [Suspect]
     Indication: CAMPYLOBACTER GASTROENTERITIS
  5. KLACID [Suspect]
     Indication: DUODENAL ULCER
  6. PANTOPRAZOLE [Suspect]
     Indication: HELICOBACTER INFECTION
     Route: 048
     Dates: end: 20051213
  7. PANTOPRAZOLE [Suspect]
     Indication: DUODENAL ULCER
  8. PANTOPRAZOLE [Suspect]
     Indication: CAMPYLOBACTER GASTROENTERITIS
  9. AMOXICILLIN [Suspect]
     Indication: HELICOBACTER INFECTION
     Route: 048
     Dates: end: 20051213
  10. AMOXICILLIN [Suspect]
     Indication: DUODENAL ULCER
  11. AMOXICILLIN [Suspect]
     Indication: CAMPYLOBACTER GASTROENTERITIS
  12. METILDIGOXIN [Concomitant]
     Indication: DRUG USE FOR UNKNOWN INDICATION
     Route: 048
  13. LISINOPRIL [Concomitant]
     Indication: DRUG USE FOR UNKNOWN INDICATION
     Route: 048
  14. VERAPAMIL HYDROCHLORIDE [Concomitant]
     Indication: DRUG USE FOR UNKNOWN INDICATION
     Route: 048
  15. HYDROCHLOROTHIAZIDE [Concomitant]
     Indication: DRUG USE FOR UNKNOWN INDICATION
     Route: 048
  16. ENOXAPARIN SODIUM [Concomitant]
     Indication: DRUG USE FOR UNKNOWN INDICATION
     Route: 058
  17. ENOXAPARIN SODIUM [Concomitant]
     Indication: DRUG USE FOR UNKNOWN INDICATION
     Route: 058

REACTIONS (3)
  - ELECTROCARDIOGRAM QT PROLONGED [None]
  - RESUSCITATION [None]
  - VENTRICULAR FIBRILLATION [None]
